FAERS Safety Report 14676084 (Version 1)
Quarter: 2018Q1

REPORT INFORMATION
  Report Type: Spontaneous
  Country: DE (occurrence: DE)
  Receive Date: 20180323
  Receipt Date: 20180323
  Transmission Date: 20180509
  Serious: Yes (Other)
  Sender: FDA-Public Use
  Company Number: DE-009507513-1803DEU008019

PATIENT
  Sex: Female

DRUGS (1)
  1. ZEPATIER [Suspect]
     Active Substance: ELBASVIR\GRAZOPREVIR
     Indication: HEPATITIS C
     Dosage: 1 FILM COATED TABLET A DAY
     Route: 048
     Dates: start: 201801

REACTIONS (2)
  - Influenza like illness [Recovering/Resolving]
  - Cardiovascular insufficiency [Recovering/Resolving]

NARRATIVE: CASE EVENT DATE: 201803
